FAERS Safety Report 24212414 (Version 2)
Quarter: 2024Q3

REPORT INFORMATION
  Report Type: Report from Study
  Country: JP (occurrence: JP)
  Receive Date: 20240815
  Receipt Date: 20240903
  Transmission Date: 20241016
  Serious: Yes (Hospitalization, Other)
  Sender: MERCK
  Company Number: JP-MSD-NOX010101-029

PATIENT
  Age: 64 Year
  Sex: Male
  Weight: 41 kg

DRUGS (10)
  1. POSACONAZOLE [Suspect]
     Active Substance: POSACONAZOLE
     Indication: Antifungal prophylaxis
     Dosage: 300 MILLIGRAM, BID
     Route: 048
     Dates: start: 20231107, end: 20231107
  2. POSACONAZOLE [Suspect]
     Active Substance: POSACONAZOLE
     Dosage: 300 MILLIGRAM, QD
     Route: 048
     Dates: start: 20231108, end: 20240227
  3. GARENOXACIN MESYLATE [Suspect]
     Active Substance: GARENOXACIN MESYLATE
     Indication: Prophylaxis
     Dosage: UNK
     Route: 048
     Dates: start: 20240206, end: 20240220
  4. FLUDARABINE PHOSPHATE [Suspect]
     Active Substance: FLUDARABINE PHOSPHATE
     Indication: Medical procedure
     Dosage: UNK
     Route: 065
     Dates: start: 20231117, end: 20231121
  5. MELPHALAN [Suspect]
     Active Substance: MELPHALAN
     Indication: Medical procedure
     Dosage: UNK
     Route: 065
     Dates: start: 20231117, end: 20231121
  6. LEVOFLOXACIN [Concomitant]
     Active Substance: LEVOFLOXACIN
     Indication: Prophylaxis
     Dosage: UNK
     Route: 048
     Dates: start: 20231107, end: 20231113
  7. ZOVIRAX [Concomitant]
     Active Substance: ACYCLOVIR
     Indication: Prophylaxis
     Dosage: UNK
     Route: 048
     Dates: start: 20231107
  8. LEVOFLOXACIN HEMIHYDRATE [Concomitant]
     Active Substance: LEVOFLOXACIN
     Indication: Prophylaxis
     Dosage: UNK
     Route: 048
     Dates: start: 20231114, end: 20231201
  9. PREDNISOLONE SODIUM SUCCINATE [Concomitant]
     Active Substance: PREDNISOLONE SODIUM SUCCINATE
     Indication: Acute myeloid leukaemia
     Dosage: UNK
     Route: 051
     Dates: start: 20231116, end: 20231116
  10. MICAFUNGIN SODIUM [Concomitant]
     Active Substance: MICAFUNGIN SODIUM
     Indication: Prophylaxis
     Dosage: UNK
     Route: 051
     Dates: start: 20231116, end: 20231219

REACTIONS (6)
  - Hypokalaemia [Recovered/Resolved]
  - Myelosuppression [Recovered/Resolved]
  - Engraftment syndrome [Recovered/Resolved]
  - Febrile neutropenia [Recovering/Resolving]
  - Pneumonia [Recovering/Resolving]
  - Diarrhoea [Recovering/Resolving]

NARRATIVE: CASE EVENT DATE: 20231101
